FAERS Safety Report 7043805-3 (Version None)
Quarter: 2010Q4

REPORT INFORMATION
  Report Type: 
  Country: None (occurrence: None)
  Receive Date: 20101013
  Receipt Date: 20101008
  Transmission Date: 20110411
  Serious: Yes (Other)
  Sender: FDA-Public Use
  Company Number: US-AMGEN-QUU440568

PATIENT
  Sex: Female
  Weight: 36.5 kg

DRUGS (6)
  1. EPOGEN [Suspect]
     Indication: DIALYSIS
     Route: 058
     Dates: start: 20060717
  2. CALCITRIOL [Concomitant]
     Route: 048
  3. RENAGEL [Concomitant]
     Route: 048
  4. CITALOPRAM HYDROBROMIDE [Concomitant]
     Route: 048
  5. K-TAB [Concomitant]
     Route: 048
  6. TRIMETHOPRIM [Concomitant]
     Route: 048

REACTIONS (2)
  - HAEMOGLOBIN DECREASED [None]
  - INCORRECT STORAGE OF DRUG [None]
